FAERS Safety Report 13639664 (Version 1)
Quarter: 2017Q2

REPORT INFORMATION
  Report Type: Spontaneous
  Country: US (occurrence: US)
  Receive Date: 20170609
  Receipt Date: 20170609
  Transmission Date: 20170830
  Serious: Yes (Other)
  Sender: FDA-Public Use
  Company Number: US-ROCHE-698136

PATIENT
  Sex: Male
  Weight: 72.6 kg

DRUGS (1)
  1. KLONOPIN [Suspect]
     Active Substance: CLONAZEPAM
     Indication: SEIZURE
     Dosage: START DATE: 2010
     Route: 048

REACTIONS (2)
  - Therapeutic response decreased [Unknown]
  - Seizure [Unknown]
